FAERS Safety Report 10144642 (Version 1)
Quarter: 2014Q2

REPORT INFORMATION
  Report Type: Spontaneous
  Country: US (occurrence: US)
  Receive Date: 20140430
  Receipt Date: 20140430
  Transmission Date: 20141212
  Serious: No
  Sender: FDA-Public Use
  Company Number: US-SANOFI-AVENTIS-2013SA052129

PATIENT
  Sex: Female

DRUGS (1)
  1. LOVENOX [Suspect]

REACTIONS (5)
  - Abscess [Not Recovered/Not Resolved]
  - Contusion [Unknown]
  - Injection site reaction [Not Recovered/Not Resolved]
  - Injection site rash [Unknown]
  - Pain [Not Recovered/Not Resolved]
